FAERS Safety Report 14987585 (Version 1)
Quarter: 2018Q2

REPORT INFORMATION
  Report Type: Spontaneous
  Country: US (occurrence: US)
  Receive Date: 20180518
  Receipt Date: 20180518
  Transmission Date: 20180711
  Serious: No
  Sender: FDA-Public Use
  Company Number: None

PATIENT
  Age: 39 Year
  Sex: Female

DRUGS (1)
  1. AMMENS MEDICATED POWDER SHOWER FRESH FORMULA [Suspect]
     Active Substance: ZINC OXIDE
     Indication: PERSONAL HYGIENE
     Dosage: ?          OTHER FREQUENCY:AFTER SHOWERS;?
     Route: 061
     Dates: start: 20180422, end: 20180517

REACTIONS (2)
  - Rash generalised [None]
  - Burning sensation [None]
